FAERS Safety Report 8015205-0 (Version None)
Quarter: 2011Q4

REPORT INFORMATION
  Report Type: 
  Country: None (occurrence: None)
  Receive Date: 20111230
  Receipt Date: 20111227
  Transmission Date: 20120403
  Serious: No
  Sender: FDA-Public Use
  Company Number: US-BIOGENIDEC-2011BI048760

PATIENT
  Age: 52 Year
  Sex: Female

DRUGS (4)
  1. TYSABRI [Suspect]
     Indication: MULTIPLE SCLEROSIS
     Route: 042
     Dates: start: 20080822
  2. TYSABRI [Suspect]
     Route: 042
     Dates: start: 20070319, end: 20071224
  3. AVONEX [Concomitant]
     Indication: MULTIPLE SCLEROSIS
     Route: 030
     Dates: start: 19970601
  4. TYSABRI [Suspect]
     Route: 042
     Dates: start: 20060701, end: 20061001

REACTIONS (4)
  - CONFUSIONAL STATE [None]
  - MENTAL IMPAIRMENT [None]
  - PAIN [None]
  - MOBILITY DECREASED [None]
